FAERS Safety Report 6323795-9 (Version None)
Quarter: 2009Q3

REPORT INFORMATION
  Report Type: 
  Country: None (occurrence: None)
  Receive Date: 20090824
  Receipt Date: 20090601
  Transmission Date: 20100115
  Serious: No
  Sender: FDA-Public Use
  Company Number: US-ABBOTT-09P-163-0577789-00

PATIENT
  Sex: Female
  Weight: 90.8 kg

DRUGS (4)
  1. NIASPAN [Suspect]
     Indication: BLOOD CHOLESTEROL INCREASED
     Route: 048
     Dates: start: 20090526
  2. DIOVAN [Concomitant]
     Indication: HYPERTENSION
  3. PROTONIX [Concomitant]
     Indication: DRUG USE FOR UNKNOWN INDICATION
  4. ZYRTEC [Concomitant]
     Indication: SEASONAL ALLERGY

REACTIONS (2)
  - DIZZINESS [None]
  - FLUSHING [None]
